FAERS Safety Report 17584638 (Version 3)
Quarter: 2020Q2

REPORT INFORMATION
  Report Type: Spontaneous
  Country: US (occurrence: US)
  Receive Date: 20200326
  Receipt Date: 20200602
  Transmission Date: 20200713
  Serious: Yes (Hospitalization, Other)
  Sender: FDA-Public Use
  Company Number: US-GLAXOSMITHKLINE-US2020AMR052801

PATIENT
  Age: 75 Year
  Sex: Male

DRUGS (1)
  1. TRELEGY ELLIPTA [Suspect]
     Active Substance: FLUTICASONE FUROATE\UMECLIDINIUM BROMIDE\VILANTEROL TRIFENATATE
     Indication: PRODUCT USED FOR UNKNOWN INDICATION
     Dosage: UNK
     Route: 065
     Dates: start: 20200211

REACTIONS (15)
  - Blood urea increased [Unknown]
  - Dyspnoea [Unknown]
  - Tubulointerstitial nephritis [Unknown]
  - Haematuria [Unknown]
  - Renal impairment [Unknown]
  - Blood creatinine increased [Unknown]
  - Haemodialysis [Unknown]
  - Biopsy kidney [Unknown]
  - Condition aggravated [Unknown]
  - Focal segmental glomerulosclerosis [Unknown]
  - Urine output decreased [Unknown]
  - Oedema [Unknown]
  - Hospitalisation [Unknown]
  - Adverse event [Unknown]
  - Rash [Unknown]

NARRATIVE: CASE EVENT DATE: 2020
